FAERS Safety Report 4762819-7 (Version None)
Quarter: 2005Q3

REPORT INFORMATION
  Report Type: 
  Country: None (occurrence: None)
  Receive Date: 20050906
  Receipt Date: 20050823
  Transmission Date: 20060218
  Serious: Yes (Hospitalization)
  Sender: FDA-Public Use
  Company Number: 2005AL003337

PATIENT
  Age: 75 Year
  Sex: Male
  Weight: 90 kg

DRUGS (9)
  1. CITALOPRAM HYDROBROMIDE [Suspect]
     Dosage: 40 MG, QD;
  2. LEVOFLOXACIN [Suspect]
     Indication: URINARY TRACT INFECTION
     Dosage: 500 MG; QD;
  3. DONEPEZIL HCL [Suspect]
     Dosage: 10 MG; QD;
  4. ASPIRIN [Suspect]
     Dosage: 81 MG; QD;
  5. GABAPENTIN [Concomitant]
  6. DIVALPROEX SODIUM [Concomitant]
  7. RANITIDINE [Concomitant]
  8. DOXAZOSIN [Concomitant]
  9. FOLATE [Concomitant]

REACTIONS (7)
  - AMNESIA [None]
  - CONVULSION [None]
  - DRUG INTERACTION [None]
  - DRUG TOXICITY [None]
  - INCORRECT DOSE ADMINISTERED [None]
  - PLATELET COUNT DECREASED [None]
  - URINARY TRACT INFECTION [None]
